FAERS Safety Report 9358145 (Version 1)
Quarter: 2013Q2

REPORT INFORMATION
  Report Type: Spontaneous
  Country: US (occurrence: US)
  Receive Date: 20130620
  Receipt Date: 20130620
  Transmission Date: 20140414
  Serious: No
  Sender: FDA-Public Use
  Company Number: US-PFIZER INC-2013183944

PATIENT
  Age: 66 Year
  Sex: Female
  Weight: 54.42 kg

DRUGS (2)
  1. COLESTIPOL HCL [Suspect]
     Indication: DIARRHOEA
     Dosage: 2 DF, 2X/DAY
     Route: 048
     Dates: start: 2012
  2. COLESTIPOL HCL [Suspect]
     Indication: BLOOD CHOLESTEROL ABNORMAL

REACTIONS (2)
  - Off label use [Unknown]
  - Flatulence [Not Recovered/Not Resolved]
